FAERS Safety Report 5115671-4 (Version None)
Quarter: 2006Q3

REPORT INFORMATION
  Report Type: 
  Country: None (occurrence: None)
  Receive Date: 20060926
  Receipt Date: 20060926
  Transmission Date: 20061208
  Serious: Yes (Other)
  Sender: FDA-Public Use
  Company Number: None

PATIENT
  Age: 58 Year
  Sex: Male
  Weight: 95.2554 kg

DRUGS (2)
  1. DEPO-MEDROL [Suspect]
     Indication: LUMBAR RADICULOPATHY
     Dosage: 80 MG 2 EPIDRUAL  SINGLE INJECTION
     Route: 008
     Dates: start: 20060623, end: 20060623
  2. DEPO-MEDROL [Suspect]
     Indication: LUMBAR RADICULOPATHY
     Dosage: 80 MG 2 EPIDRUAL  SINGLE INJECTION
     Route: 008
     Dates: start: 20060714, end: 20060714

REACTIONS (9)
  - CONTRAINDICATION TO MEDICAL TREATMENT [None]
  - DRUG INEFFECTIVE [None]
  - HYPERAESTHESIA [None]
  - INCORRECT ROUTE OF DRUG ADMINISTRATION [None]
  - MUSCLE SPASMS [None]
  - PAIN [None]
  - PAIN IN EXTREMITY [None]
  - POSTURE ABNORMAL [None]
  - WALKING AID USER [None]
